FAERS Safety Report 25063296 (Version 1)
Quarter: 2025Q1

REPORT INFORMATION
  Report Type: Spontaneous
  Country: US (occurrence: None)
  Receive Date: 20250311
  Receipt Date: 20250311
  Transmission Date: 20250408
  Serious: Yes (Hospitalization)
  Sender: FDA-CTU
  Company Number: None

PATIENT
  Age: 45 Year
  Sex: Female
  Weight: 115.4 kg

DRUGS (3)
  1. CYTARABINE [Suspect]
     Active Substance: CYTARABINE
     Dates: end: 20250203
  2. METHOTREXATE [Suspect]
     Active Substance: METHOTREXATE
     Dates: end: 20250201
  3. PONATINIB [Suspect]
     Active Substance: PONATINIB
     Dates: end: 20250208

REACTIONS (6)
  - Dehydration [None]
  - Diarrhoea [None]
  - Acute kidney injury [None]
  - Hypovolaemia [None]
  - Hypokalaemia [None]
  - Thrombocytopenia [None]

NARRATIVE: CASE EVENT DATE: 20250208
